FAERS Safety Report 15318222 (Version 3)
Quarter: 2018Q3

REPORT INFORMATION
  Report Type: Report from Study
  Country: US (occurrence: US)
  Receive Date: 20180825
  Receipt Date: 20180911
  Transmission Date: 20181010
  Serious: Yes (Other)
  Sender: FDA-Public Use
  Company Number: PHEH2018US035097

PATIENT
  Sex: Female

DRUGS (1)
  1. COSENTYX [Suspect]
     Active Substance: SECUKINUMAB
     Indication: PSORIASIS
     Dosage: UNK
     Route: 065

REACTIONS (11)
  - Peripheral swelling [Unknown]
  - Alopecia [Unknown]
  - Pruritus [Unknown]
  - Condition aggravated [Unknown]
  - Psoriasis [Unknown]
  - Mobility decreased [Unknown]
  - Joint lock [Unknown]
  - Skin haemorrhage [Unknown]
  - Peripheral vascular disorder [Unknown]
  - Abscess limb [Unknown]
  - Skin lesion [Unknown]
